FAERS Safety Report 13894616 (Version 3)
Quarter: 2017Q4

REPORT INFORMATION
  Report Type: Spontaneous
  Country: JP (occurrence: JP)
  Receive Date: 20170823
  Receipt Date: 20171128
  Transmission Date: 20180320
  Serious: Yes (Other)
  Sender: FDA-Public Use
  Company Number: JP-AMGEN-JPNSP2017127358

PATIENT
  Age: 85 Year
  Sex: Female

DRUGS (2)
  1. EDIROL [Concomitant]
     Active Substance: ELDECALCITOL
     Dosage: UNK
     Route: 048
     Dates: start: 201311
  2. PRALIA [Suspect]
     Active Substance: DENOSUMAB
     Indication: OSTEOPOROSIS
     Dosage: 60 MG, Q6MO (TOTAL 6 TIMES)
     Route: 058
     Dates: start: 20141106

REACTIONS (3)
  - Osteonecrosis of jaw [Recovered/Resolved]
  - Periodontitis [Unknown]
  - Osteonecrosis of jaw [Not Recovered/Not Resolved]

NARRATIVE: CASE EVENT DATE: 20160205
